FAERS Safety Report 5465328-5 (Version None)
Quarter: 2007Q3

REPORT INFORMATION
  Report Type: 
  Country: None (occurrence: None)
  Receive Date: 20070920
  Receipt Date: 20070920
  Transmission Date: 20080115
  Serious: Yes (Hospitalization)
  Sender: FDA-Public Use
  Company Number: None

PATIENT
  Sex: Female
  Weight: 50 kg

DRUGS (7)
  1. CARBOPLATIN [Suspect]
     Dosage: 656 MG
  2. TAXOL [Suspect]
     Dosage: 282 MG
  3. AMBIEN [Concomitant]
  4. CELEXA [Concomitant]
  5. COLACE [Concomitant]
  6. KEFLEX [Concomitant]
  7. XANAX [Concomitant]

REACTIONS (5)
  - CATHETER SITE ERYTHEMA [None]
  - CATHETER SITE PAIN [None]
  - CATHETER SITE RELATED REACTION [None]
  - CENTRAL LINE INFECTION [None]
  - IMPLANT SITE INDURATION [None]
